FAERS Safety Report 12317270 (Version 1)
Quarter: 2016Q2

REPORT INFORMATION
  Report Type: Spontaneous
  Country: US (occurrence: None)
  Receive Date: 20160428
  Receipt Date: 20160428
  Transmission Date: 20160815
  Serious: Yes (Other)
  Sender: FDA-Public Use
  Company Number: None

PATIENT
  Age: 49 Year
  Sex: Female
  Weight: 61.24 kg

DRUGS (5)
  1. FLUCONAZOLE. [Suspect]
     Active Substance: FLUCONAZOLE
     Indication: FUNGAL INFECTION
     Dosage: 1 TABLET(S) 1 EVERY 3 DAYS TAKEN BY MOUTH
     Route: 048
     Dates: start: 20160426, end: 20160427
  2. GABAPENTIN. [Concomitant]
     Active Substance: GABAPENTIN
  3. SERTRALANE [Concomitant]
  4. BENADRYL [Concomitant]
     Active Substance: DIPHENHYDRAMINE HYDROCHLORIDE
  5. HYDROXIZINE HCL [Concomitant]

REACTIONS (6)
  - Paraesthesia oral [None]
  - Rash [None]
  - Rash erythematous [None]
  - Migraine [None]
  - Lip swelling [None]
  - Gastrointestinal pain [None]

NARRATIVE: CASE EVENT DATE: 20160426
